FAERS Safety Report 26010618 (Version 1)
Quarter: 2025Q4

REPORT INFORMATION
  Report Type: Spontaneous
  Country: EU (occurrence: EU)
  Receive Date: 20251107
  Receipt Date: 20251107
  Transmission Date: 20260118
  Serious: Yes (Other)
  Sender: ACCORD
  Company Number: None

PATIENT
  Sex: Male
  Weight: 78.5 kg

DRUGS (57)
  1. ARIPIPRAZOLE [Suspect]
     Active Substance: ARIPIPRAZOLE
     Indication: Product used for unknown indication
     Dates: start: 20250507, end: 20250516
  2. PREGABALIN [Suspect]
     Active Substance: PREGABALIN
     Indication: Product used for unknown indication
     Dates: start: 20250507, end: 20250507
  3. MIRTAZAPINE [Suspect]
     Active Substance: MIRTAZAPINE
     Indication: Product used for unknown indication
     Dates: start: 20250507, end: 20250810
  4. VENLAFAXINE [Suspect]
     Active Substance: VENLAFAXINE HYDROCHLORIDE
     Indication: Product used for unknown indication
     Dates: start: 20250515, end: 20250729
  5. XYZAL [Suspect]
     Active Substance: LEVOCETIRIZINE DIHYDROCHLORIDE
     Indication: Product used for unknown indication
     Dates: start: 20250507, end: 20250905
  6. GINKGO [Suspect]
     Active Substance: GINKGO
     Indication: Product used for unknown indication
     Dates: start: 20250507, end: 20250618
  7. MELATONIN [Suspect]
     Active Substance: MELATONIN
     Indication: Product used for unknown indication
     Dates: start: 20250507, end: 20250729
  8. LORAZEPAM [Suspect]
     Active Substance: LORAZEPAM
     Indication: Product used for unknown indication
     Dates: start: 20250516, end: 20250609
  9. IVABRADINE [Suspect]
     Active Substance: IVABRADINE
     Indication: Product used for unknown indication
     Dates: start: 20250507, end: 20250519
  10. KETOTIFEN [Suspect]
     Active Substance: KETOTIFEN
     Indication: Product used for unknown indication
     Dates: start: 20250507, end: 20250715
  11. ASPIRIN [Concomitant]
     Active Substance: ASPIRIN
     Dosage: STRENGTH: 100 MG
     Dates: start: 20250507, end: 20250905
  12. NALTREXONE [Concomitant]
     Active Substance: NALTREXONE
     Dates: start: 20250507, end: 20250613
  13. Ketanest [Concomitant]
     Dates: start: 20250731, end: 20250731
  14. ENOXAPARIN SODIUM [Concomitant]
     Active Substance: ENOXAPARIN SODIUM
     Dates: start: 20250513, end: 20250609
  15. ARIPIPRAZOLE [Suspect]
     Active Substance: ARIPIPRAZOLE
     Indication: Product used for unknown indication
     Dates: start: 20250517, end: 20250905
  16. PREGABALIN [Suspect]
     Active Substance: PREGABALIN
     Indication: Product used for unknown indication
     Dates: start: 20250508, end: 20250508
  17. PREGABALIN [Suspect]
     Active Substance: PREGABALIN
     Indication: Product used for unknown indication
     Dates: start: 20250509, end: 20250509
  18. PREGABALIN [Suspect]
     Active Substance: PREGABALIN
     Indication: Product used for unknown indication
     Dates: start: 20250510, end: 20250512
  19. PREGABALIN [Suspect]
     Active Substance: PREGABALIN
     Indication: Product used for unknown indication
     Dates: start: 20250513, end: 20250513
  20. PREGABALIN [Suspect]
     Active Substance: PREGABALIN
     Indication: Product used for unknown indication
     Dates: start: 20250514, end: 20250514
  21. PREGABALIN [Suspect]
     Active Substance: PREGABALIN
     Indication: Product used for unknown indication
     Dates: start: 20250515, end: 20250519
  22. PREGABALIN [Suspect]
     Active Substance: PREGABALIN
     Indication: Product used for unknown indication
     Dates: start: 20250520, end: 20250520
  23. PREGABALIN [Suspect]
     Active Substance: PREGABALIN
     Indication: Product used for unknown indication
     Dates: start: 20250521, end: 20250521
  24. PREGABALIN [Suspect]
     Active Substance: PREGABALIN
     Indication: Product used for unknown indication
     Dates: start: 20250522, end: 20250527
  25. PREGABALIN [Suspect]
     Active Substance: PREGABALIN
     Indication: Product used for unknown indication
     Dates: start: 20250528, end: 20250601
  26. PREGABALIN [Suspect]
     Active Substance: PREGABALIN
     Indication: Product used for unknown indication
     Dates: start: 20250602, end: 20250602
  27. PREGABALIN [Suspect]
     Active Substance: PREGABALIN
     Indication: Product used for unknown indication
     Dates: start: 20250603, end: 20250604
  28. PREGABALIN [Suspect]
     Active Substance: PREGABALIN
     Indication: Product used for unknown indication
     Dates: start: 20250605, end: 20250804
  29. PREGABALIN [Suspect]
     Active Substance: PREGABALIN
     Indication: Product used for unknown indication
     Dates: start: 20250805, end: 20250807
  30. PREGABALIN [Suspect]
     Active Substance: PREGABALIN
     Indication: Product used for unknown indication
     Dates: start: 20250808, end: 20250812
  31. PREGABALIN [Suspect]
     Active Substance: PREGABALIN
     Indication: Product used for unknown indication
     Dates: start: 20250813, end: 20250828
  32. PREGABALIN [Suspect]
     Active Substance: PREGABALIN
     Indication: Product used for unknown indication
     Dates: start: 20250829, end: 20250905
  33. MIRTAZAPINE [Suspect]
     Active Substance: MIRTAZAPINE
     Indication: Product used for unknown indication
     Dates: start: 20250811, end: 20250905
  34. VENLAFAXINE [Suspect]
     Active Substance: VENLAFAXINE HYDROCHLORIDE
     Indication: Product used for unknown indication
     Dates: start: 20250508, end: 20250514
  35. MELATONIN [Suspect]
     Active Substance: MELATONIN
     Indication: Product used for unknown indication
     Dates: start: 20250730, end: 20250905
  36. Ketanest [Concomitant]
     Dates: start: 20250513, end: 20250513
  37. Ketanest [Concomitant]
     Dates: start: 20250714, end: 20250714
  38. Ketanest [Concomitant]
     Dates: start: 20250721, end: 20250721
  39. Ketanest [Concomitant]
     Dates: start: 20250728, end: 20250728
  40. Ketanest [Concomitant]
     Dates: start: 20250515, end: 20250515
  41. Ketanest [Concomitant]
     Dates: start: 20250520, end: 20250520
  42. Ketanest [Concomitant]
     Dates: start: 20250522, end: 20250522
  43. Ketanest [Concomitant]
     Dates: start: 20250527, end: 20250527
  44. Ketanest [Concomitant]
     Dates: start: 20250603, end: 20250603
  45. Ketanest [Concomitant]
     Dates: start: 20250605, end: 20250605
  46. Ketanest [Concomitant]
     Dates: start: 20250610, end: 20250610
  47. Ketanest [Concomitant]
     Dates: start: 20250612, end: 20250612
  48. Ketanest [Concomitant]
     Dates: start: 20250617, end: 20250617
  49. Ketanest [Concomitant]
     Dates: start: 20250619, end: 20250619
  50. Ketanest [Concomitant]
     Dates: start: 20250624, end: 20250624
  51. Ketanest [Concomitant]
     Dates: start: 20250626, end: 20250626
  52. Ketanest [Concomitant]
     Dates: start: 20250707, end: 20250707
  53. LORAZEPAM [Suspect]
     Active Substance: LORAZEPAM
     Indication: Product used for unknown indication
     Dates: start: 20250610, end: 20250611
  54. LORAZEPAM [Suspect]
     Active Substance: LORAZEPAM
     Indication: Product used for unknown indication
     Dates: start: 20250612, end: 20250614
  55. LORAZEPAM [Suspect]
     Active Substance: LORAZEPAM
     Indication: Product used for unknown indication
     Dates: start: 20250615, end: 20250618
  56. LORAZEPAM [Suspect]
     Active Substance: LORAZEPAM
     Indication: Product used for unknown indication
     Dates: start: 20250619, end: 20250715
  57. IVABRADINE [Suspect]
     Active Substance: IVABRADINE
     Indication: Product used for unknown indication
     Dates: start: 20250520, end: 20250715

REACTIONS (2)
  - Constipation [Recovering/Resolving]
  - Urinary hesitation [Recovering/Resolving]

NARRATIVE: CASE EVENT DATE: 20250516
